FAERS Safety Report 6328137-0 (Version None)
Quarter: 2009Q3

REPORT INFORMATION
  Report Type: 
  Country: None (occurrence: None)
  Receive Date: 20090825
  Receipt Date: 20090115
  Transmission Date: 20100115
  Serious: No
  Sender: FDA-Public Use
  Company Number: US-ABBOTT-09P-163-0498287-00

PATIENT
  Sex: Female
  Weight: 76.272 kg

DRUGS (5)
  1. SYNTHROID [Suspect]
     Indication: AUTOIMMUNE THYROIDITIS
     Route: 048
     Dates: start: 19950101, end: 20061101
  2. SYNTHROID [Suspect]
     Route: 048
     Dates: start: 20061101, end: 20080801
  3. FISH OIL [Concomitant]
     Indication: SUPPLEMENTATION THERAPY
     Route: 048
  4. ALAVERT [Concomitant]
     Indication: HYPERSENSITIVITY
  5. ARMOR [Concomitant]
     Indication: AUTOIMMUNE THYROIDITIS
     Route: 048
     Dates: start: 20080801

REACTIONS (9)
  - BLOOD CHOLESTEROL INCREASED [None]
  - DEPRESSION [None]
  - DISTURBANCE IN ATTENTION [None]
  - HYPOKINESIA [None]
  - LETHARGY [None]
  - PAIN [None]
  - SWELLING FACE [None]
  - VITAMIN D DEFICIENCY [None]
  - WEIGHT INCREASED [None]
